FAERS Safety Report 4913384-2 (Version None)
Quarter: 2006Q1

REPORT INFORMATION
  Report Type: 
  Country: None (occurrence: None)
  Receive Date: 20060210
  Receipt Date: 20060207
  Transmission Date: 20060701
  Serious: Yes (Hospitalization)
  Sender: FDA-Public Use
  Company Number: B0409322A

PATIENT
  Age: 20 Year
  Sex: Male

DRUGS (1)
  1. AMOXIL [Suspect]
     Dosage: ORAL
     Route: 048
     Dates: start: 20050101, end: 20050101

REACTIONS (4)
  - ANAPHYLACTOID REACTION [None]
  - DRUG HYPERSENSITIVITY [None]
  - SIMILAR REACTION ON PREVIOUS EXPOSURE TO DRUG [None]
  - SKIN TEST POSITIVE [None]
